FAERS Safety Report 9814772 (Version 4)
Quarter: 2014Q2

REPORT INFORMATION
  Report Type: Report from Study
  Country: CA (occurrence: CA)
  Receive Date: 20140113
  Receipt Date: 20140429
  Transmission Date: 20141212
  Serious: Yes (Hospitalization)
  Sender: FDA-Public Use
  Company Number: CA-ONYX-2013-0748

PATIENT
  Age: 76 Year
  Sex: Male

DRUGS (24)
  1. CARFILZOMIB [Suspect]
     Indication: PLASMA CELL MYELOMA
     Route: 042
     Dates: start: 20130131, end: 20130201
  2. CARFILZOMIB [Suspect]
     Route: 042
     Dates: start: 20130207, end: 20130208
  3. CARFILZOMIB [Suspect]
     Route: 042
     Dates: start: 20130228, end: 20130425
  4. CARFILZOMIB [Suspect]
     Route: 042
     Dates: start: 20130426, end: 20130426
  5. CARFILZOMIB [Suspect]
     Route: 042
     Dates: start: 20130509, end: 20130510
  6. DEXAMETHASONE [Suspect]
     Indication: PLASMA CELL MYELOMA
     Route: 048
     Dates: start: 20130131, end: 20130426
  7. DEXAMETHASONE [Suspect]
     Route: 048
     Dates: start: 20130509, end: 20130510
  8. GENERIC VERSION OF VASOTEC [Concomitant]
     Indication: HYPERTENSION
     Route: 048
     Dates: start: 1995
  9. HYDROCHLORTHAZIDE [Concomitant]
     Indication: HYPERTENSION
     Route: 048
     Dates: start: 1995, end: 20130510
  10. NORVASC [Concomitant]
     Indication: HYPERTENSION
     Route: 048
     Dates: start: 1995
  11. NORVASC [Concomitant]
     Route: 048
     Dates: start: 20130225
  12. DOXASOZINE [Concomitant]
     Indication: HYPERTENSION
     Route: 048
     Dates: start: 2005
  13. LEVOTHYRIXINE [Concomitant]
     Indication: PROPHYLAXIS
     Route: 048
     Dates: start: 2010
  14. ACYCLOVIR [Concomitant]
     Indication: ANTIVIRAL PROPHYLAXIS
     Route: 048
     Dates: start: 20130131
  15. PANTALOC [Concomitant]
     Indication: PROPHYLAXIS
     Route: 048
     Dates: start: 20130131
  16. STEMETIL [Concomitant]
     Indication: NAUSEA
     Route: 048
     Dates: start: 20130131
  17. VITAMIN D [Concomitant]
     Indication: VITAMIN SUPPLEMENTATION
     Route: 048
     Dates: start: 2005, end: 20130510
  18. VITAMIN B12 [Concomitant]
     Indication: VITAMIN SUPPLEMENTATION
     Route: 048
     Dates: start: 2012, end: 20130510
  19. METAMUCIL [Concomitant]
     Indication: SUPPLEMENTATION THERAPY
     Route: 048
     Dates: start: 2005
  20. DOCUSATE [Concomitant]
     Indication: CONSTIPATION PROPHYLAXIS
     Route: 048
     Dates: start: 2005
  21. PAMIDRONATE [Concomitant]
     Indication: PROPHYLAXIS
     Route: 042
     Dates: start: 20110120
  22. CIPRALEX [Concomitant]
     Indication: ANTIDEPRESSANT THERAPY
     Route: 048
     Dates: start: 20130322, end: 20130418
  23. TYLENOL [Concomitant]
     Indication: MUSCULOSKELETAL CHEST PAIN
     Route: 048
     Dates: start: 20130220
  24. TYLENOL [Concomitant]
     Indication: BACK PAIN

REACTIONS (2)
  - Respiratory failure [Recovered/Resolved]
  - Pneumonia [Recovered/Resolved]
